FAERS Safety Report 17289491 (Version 1)
Quarter: 2020Q1

REPORT INFORMATION
  Report Type: Spontaneous
  Country: US (occurrence: US)
  Receive Date: 20200120
  Receipt Date: 20200120
  Transmission Date: 20200409
  Serious: No
  Sender: FDA-Public Use
  Company Number: US-MAYNE PHARMA-2019MYN000880

PATIENT

DRUGS (1)
  1. DOXYCYCLINE MONOHYDRATE [Suspect]
     Active Substance: DOXYCYCLINE
     Indication: LYME DISEASE
     Dosage: 100 MG,AS DIRECTED
     Route: 048

REACTIONS (5)
  - Alcoholism [Unknown]
  - Substance dependence [Unknown]
  - Anger [Unknown]
  - Pain [Unknown]
  - Drug ineffective [Unknown]
